FAERS Safety Report 4948566-7 (Version None)
Quarter: 2006Q1

REPORT INFORMATION
  Report Type: 
  Country: None (occurrence: None)
  Receive Date: 20060201
  Receipt Date: 20051006
  Transmission Date: 20060701
  Serious: No
  Sender: FDA-Public Use
  Company Number: 2005PV002844

PATIENT
  Age: 63 Year
  Sex: Female
  Weight: 94.8018 kg

DRUGS (10)
  1. BYETTA [Suspect]
     Indication: DIABETES MELLITUS NON-INSULIN-DEPENDENT
     Dosage: 5 MCG;BID; SC
     Route: 058
     Dates: start: 20051001, end: 20051001
  2. AVANDIA [Concomitant]
  3. GLUCOPHAGE [Concomitant]
  4. CRESTOR [Concomitant]
  5. CLONIDINE [Concomitant]
  6. MAGOXIDE [Concomitant]
  7. TRICOR [Concomitant]
  8. NASACORT [Concomitant]
  9. TYLENOL W/ CODEINE NO. 3 [Concomitant]
  10. MICARDIS [Concomitant]

REACTIONS (3)
  - HYPERSENSITIVITY [None]
  - RASH [None]
  - SWELLING FACE [None]
